FAERS Safety Report 4546917-9 (Version None)
Quarter: 2005Q1

REPORT INFORMATION
  Report Type: 
  Country: None (occurrence: None)
  Receive Date: 20050105
  Receipt Date: 20041214
  Transmission Date: 20050727
  Serious: Yes (Other)
  Sender: FDA-Public Use
  Company Number: WAES 0412GBR00170

PATIENT

DRUGS (2)
  1. INDOCIN [Suspect]
     Dosage: PO
     Route: 048
  2. ETANERCEPT [Concomitant]

REACTIONS (1)
  - LIVER FUNCTION TEST ABNORMAL [None]
